FAERS Safety Report 18389030 (Version 2)
Quarter: 2020Q4

REPORT INFORMATION
  Report Type: Report from Study
  Country: None (occurrence: US)
  Receive Date: 20201016
  Receipt Date: 20201017
  Transmission Date: 20210114
  Serious: Yes (Hospitalization, Other)
  Sender: FDA-Public Use
  Company Number: US-ABBVIE-20K-163-3507223-00

PATIENT
  Age: 68 Year
  Sex: Female
  Weight: 69.46 kg

DRUGS (10)
  1. IMIPRAMINE [Concomitant]
     Active Substance: IMIPRAMINE
     Indication: ANGINA PECTORIS
  2. LISINOPRIL. [Concomitant]
     Active Substance: LISINOPRIL
     Indication: HYPERTENSION
  3. CARTIA [Concomitant]
     Indication: CARDIAC DISORDER
  4. GABAPENTINE [Concomitant]
     Active Substance: GABAPENTIN
     Indication: NEURALGIA
  5. ELIQUIS [Concomitant]
     Active Substance: APIXABAN
     Indication: PULMONARY EMBOLISM
  6. ZURICH [Concomitant]
     Indication: HYPERSENSITIVITY
  7. FLONASE [Concomitant]
     Active Substance: FLUTICASONE PROPIONATE
     Indication: HYPERSENSITIVITY
  8. HUMIRA [Suspect]
     Active Substance: ADALIMUMAB
     Indication: COLITIS ULCERATIVE
     Route: 058
     Dates: start: 20200714
  9. HUMIRA [Suspect]
     Active Substance: ADALIMUMAB
     Indication: CROHN^S DISEASE
     Route: 058
     Dates: start: 201911, end: 20200619
  10. IMIPRAMINE [Concomitant]
     Active Substance: IMIPRAMINE
     Indication: DEPRESSION

REACTIONS (9)
  - Fall [Recovered/Resolved]
  - Diarrhoea [Recovering/Resolving]
  - Concussion [Recovering/Resolving]
  - Cyst [Recovering/Resolving]
  - Fall [Recovered/Resolved]
  - Fall [Recovered/Resolved]
  - Spinal compression fracture [Recovering/Resolving]
  - Flatulence [Recovering/Resolving]
  - Bone disorder [Recovering/Resolving]

NARRATIVE: CASE EVENT DATE: 2019
